FAERS Safety Report 9790075 (Version 1)
Quarter: 2013Q4

REPORT INFORMATION
  Report Type: Spontaneous
  Country: US (occurrence: None)
  Receive Date: 20131230
  Receipt Date: 20131230
  Transmission Date: 20140711
  Serious: Yes (Life-Threatening, Hospitalization, Disabling)
  Sender: FDA-Public Use
  Company Number: None

PATIENT
  Age: 57 Year
  Sex: Male
  Weight: 99.79 kg

DRUGS (4)
  1. ELIQUIS [Suspect]
     Indication: ATRIAL FIBRILLATION
     Dosage: PRIOR TO 11/20/13 - 12/2/13
     Route: 048
     Dates: start: 20131120, end: 20131202
  2. CLOPIDOGREL [Concomitant]
  3. ASA [Concomitant]
  4. ASA [Concomitant]

REACTIONS (10)
  - Headache [None]
  - Haemorrhagic cerebral infarction [None]
  - Cerebellar infarction [None]
  - Hydrocephalus [None]
  - Subarachnoid haemorrhage [None]
  - Intraventricular haemorrhage [None]
  - Ejection fraction decreased [None]
  - International normalised ratio increased [None]
  - Activities of daily living impaired [None]
  - Aphasia [None]
